FAERS Safety Report 9018938 (Version 1)
Quarter: 2013Q1

REPORT INFORMATION
  Report Type: Spontaneous
  Country: US (occurrence: US)
  Receive Date: 20130118
  Receipt Date: 20130118
  Transmission Date: 20140127
  Serious: Yes (Other)
  Sender: FDA-Public Use
  Company Number: CHPA2013US001222

PATIENT
  Age: 72 Year
  Sex: Female

DRUGS (4)
  1. SLOW FE BROWN [Suspect]
     Indication: BLOOD IRON DECREASED
     Dosage: 0.5 DF, QD
     Route: 048
     Dates: start: 2012
  2. SLOW FE BROWN [Suspect]
     Dosage: 0.5 TO 1 DF, QD
     Route: 048
     Dates: start: 2012, end: 2012
  3. HYDROCHLOROTHIAZIDE [Suspect]
     Indication: HYPERTENSION
     Dosage: UNK, UNK
  4. SIMVASTATIN [Suspect]
     Indication: BLOOD CHOLESTEROL INCREASED
     Dosage: UNK, UNK

REACTIONS (5)
  - Loss of consciousness [Recovered/Resolved]
  - Fractured coccyx [Recovered/Resolved]
  - Drug interaction [Unknown]
  - Fall [Recovered/Resolved]
  - Constipation [Recovered/Resolved]
